FAERS Safety Report 8070714-3 (Version None)
Quarter: 2012Q1

REPORT INFORMATION
  Report Type: 
  Country: None (occurrence: None)
  Receive Date: 20120125
  Receipt Date: 20120123
  Transmission Date: 20120608
  Serious: Yes (Other)
  Sender: FDA-Public Use
  Company Number: PHEH2011US008743

PATIENT
  Sex: Male

DRUGS (2)
  1. COUMADIN [Concomitant]
     Dosage: UNK UKN, UNK
  2. GILENYA [Suspect]
     Dosage: UNK UKN, UNK

REACTIONS (1)
  - MYOCARDIAL INFARCTION [None]
